FAERS Safety Report 22539077 (Version 1)
Quarter: 2023Q2

REPORT INFORMATION
  Report Type: Spontaneous
  Country: US (occurrence: US)
  Receive Date: 20230609
  Receipt Date: 20230609
  Transmission Date: 20230721
  Serious: No
  Sender: FDA-Public Use
  Company Number: US-VIOKACE LLC-2023AIMT00525

PATIENT

DRUGS (4)
  1. VIOKACE [Suspect]
     Active Substance: PANCRELIPASE AMYLASE\PANCRELIPASE LIPASE\PANCRELIPASE PROTEASE
     Indication: Pancreatic failure
     Dosage: 20880 USP UNITS, 4 PILLS WITH EACH MEAL AND 2 PILLS WITH EACH SNACK
     Route: 048
     Dates: start: 2013, end: 2019
  2. VIOKACE [Suspect]
     Active Substance: PANCRELIPASE AMYLASE\PANCRELIPASE LIPASE\PANCRELIPASE PROTEASE
     Dosage: 20880 USP UNITS, 4 PILLS WITH EACH MEAL AND 2 PILLS WITH EACH SNACK
     Route: 048
     Dates: start: 202305
  3. FAMOTIDINE [Concomitant]
     Active Substance: FAMOTIDINE
     Indication: Gastrooesophageal reflux disease
     Dosage: UNK, AS NEEDED
  4. LEVOTHYROXINE [Concomitant]
     Active Substance: LEVOTHYROXINE
     Indication: Hypothyroidism
     Dosage: 0.025 MG, 1X/DAY

REACTIONS (1)
  - Product formulation issue [Unknown]

NARRATIVE: CASE EVENT DATE: 20230501
